FAERS Safety Report 20648145 (Version 2)
Quarter: 2022Q2

REPORT INFORMATION
  Report Type: Spontaneous
  Country: JP (occurrence: JP)
  Receive Date: 20220329
  Receipt Date: 20220531
  Transmission Date: 20220721
  Serious: Yes (Other)
  Sender: FDA-Public Use
  Company Number: JP-TAKEDA-2021TJP040606

PATIENT

DRUGS (5)
  1. ZEJULA [Suspect]
     Active Substance: NIRAPARIB
     Indication: Ovarian cancer stage III
     Dosage: 100 MILLIGRAM, BID
     Route: 048
     Dates: start: 20210222, end: 20210326
  2. ZEJULA [Suspect]
     Active Substance: NIRAPARIB
     Dosage: 100 MILLIGRAM, BID
     Route: 048
     Dates: start: 20210406, end: 20210517
  3. ZEJULA [Suspect]
     Active Substance: NIRAPARIB
     Dosage: 100 MILLIGRAM
     Route: 048
     Dates: start: 20210518, end: 20210601
  4. ZEJULA [Suspect]
     Active Substance: NIRAPARIB
     Dosage: 100 MILLIGRAM
     Route: 048
     Dates: start: 20210720, end: 20210802
  5. SODIUM FERROUS CITRATE [Concomitant]
     Active Substance: SODIUM FERROUS CITRATE
     Indication: Anaemia
     Dosage: 100 MILLIGRAM, BID
     Route: 048
     Dates: start: 20210201, end: 202108

REACTIONS (5)
  - Ovarian cancer recurrent [Unknown]
  - Myelosuppression [Recovered/Resolved]
  - Supraventricular tachycardia [Unknown]
  - Nausea [Unknown]
  - Decreased appetite [Unknown]

NARRATIVE: CASE EVENT DATE: 20210317
